FAERS Safety Report 5688255-7 (Version None)
Quarter: 2008Q1

REPORT INFORMATION
  Report Type: 
  Country: None (occurrence: None)
  Receive Date: 20080331
  Receipt Date: 20080318
  Transmission Date: 20080703
  Serious: Yes (Life-Threatening, Hospitalization, Other)
  Sender: FDA-Public Use
  Company Number: US-JNJFOC-20080306718

PATIENT
  Sex: Female
  Weight: 79.38 kg

DRUGS (7)
  1. REMICADE [Suspect]
     Indication: RHEUMATOID ARTHRITIS
     Route: 042
  2. METHOTREXATE [Suspect]
     Indication: DRUG USE FOR UNKNOWN INDICATION
     Route: 042
  3. VALIUM [Concomitant]
     Indication: PANIC ATTACK
     Route: 048
  4. RESTORIL [Concomitant]
     Indication: INSOMNIA
     Route: 048
  5. ZOLOFT [Concomitant]
     Indication: DEPRESSION
     Route: 048
  6. CYMBALTA [Concomitant]
     Indication: DEPRESSION
     Route: 048
  7. FENTANYL [Concomitant]
     Indication: RHEUMATOID ARTHRITIS
     Route: 061

REACTIONS (5)
  - BONE DENSITY DECREASED [None]
  - BREAST MASS [None]
  - HOSPITALISATION [None]
  - NASOPHARYNGITIS [None]
  - RASH [None]
